FAERS Safety Report 4791664-1 (Version None)
Quarter: 2005Q4

REPORT INFORMATION
  Report Type: 
  Country: None (occurrence: None)
  Receive Date: 20051005
  Receipt Date: 20050914
  Transmission Date: 20060501
  Serious: Yes (Hospitalization)
  Sender: FDA-Public Use
  Company Number: GBS050918487

PATIENT
  Sex: Male

DRUGS (1)
  1. PROZAC [Suspect]
     Indication: OBSESSIVE-COMPULSIVE DISORDER
     Dosage: 100 MG DAY

REACTIONS (4)
  - AGGRESSION [None]
  - LEGAL PROBLEM [None]
  - MANIA [None]
  - WEIGHT DECREASED [None]
